FAERS Safety Report 9215413 (Version 1)
Quarter: 2013Q2

REPORT INFORMATION
  Report Type: Report from Study
  Country: FI (occurrence: FI)
  Receive Date: 20130405
  Receipt Date: 20130405
  Transmission Date: 20140414
  Serious: Yes (Hospitalization)
  Sender: FDA-Public Use
  Company Number: FI-AMGEN-UK315585

PATIENT
  Age: 74 Year
  Sex: Male

DRUGS (13)
  1. DENOSUMAB [Suspect]
     Indication: PROSTATE CANCER
     Dosage: UNK UNK, QMO
     Route: 058
     Dates: start: 20060825, end: 20080801
  2. GOSERELIN [Concomitant]
     Dosage: 10.8 MG, Q3MO
     Route: 058
     Dates: start: 20001007
  3. MEMANTINE [Concomitant]
     Dosage: UNK UNK, UNK
     Route: 048
     Dates: start: 20071120
  4. NILVADIPINE [Concomitant]
     Dosage: 16 MG, QD
     Route: 048
     Dates: start: 20040603
  5. HYDROCHLOROTHIAZIDE [Concomitant]
     Dosage: 50 MG, QD
     Route: 048
     Dates: start: 20050317
  6. DONEPEZIL HYDROCHLORIDE [Concomitant]
     Dosage: 10 MG, QD
     Route: 048
     Dates: start: 2003
  7. ATORVASTATIN CALCIUM [Concomitant]
     Dosage: 10 MG, QD
     Route: 048
     Dates: start: 20040317
  8. LEVOCETIRIZINE [Concomitant]
     Dosage: 5 MG, QD
     Route: 048
     Dates: start: 20050210
  9. CALCIUM [Concomitant]
     Dosage: 500 MG, BID
     Route: 048
     Dates: start: 20060825
  10. ERGOCALCIFEROL [Concomitant]
     Dosage: 400 IU, BID
     Route: 048
     Dates: start: 20060825
  11. FLUTAMIDE [Concomitant]
     Dosage: 125 MG, Q8H
     Route: 048
     Dates: start: 2008, end: 20081008
  12. FUROSEMIDE [Concomitant]
  13. CYPROTERONE [Concomitant]

REACTIONS (1)
  - Exostosis of jaw [Recovered/Resolved]
